FAERS Safety Report 19969368 (Version 1)
Quarter: 2021Q4

REPORT INFORMATION
  Report Type: Spontaneous
  Country: FR (occurrence: FR)
  Receive Date: 20211019
  Receipt Date: 20211019
  Transmission Date: 20220303
  Serious: Yes (Hospitalization)
  Sender: FDA-Public Use
  Company Number: None

PATIENT
  Age: 55 Year
  Sex: Female
  Weight: 45 kg

DRUGS (8)
  1. TRAZIMERA [Suspect]
     Active Substance: TRASTUZUMAB-QYYP
     Indication: Invasive ductal breast carcinoma
     Dosage: 365 MG AT C1 (CYCLIC)
     Route: 042
     Dates: start: 20210415
  2. TRAZIMERA [Suspect]
     Active Substance: TRASTUZUMAB-QYYP
     Dosage: 300 MG, C2 (CYCLIC)
     Route: 042
     Dates: start: 20210507
  3. TRAZIMERA [Suspect]
     Active Substance: TRASTUZUMAB-QYYP
     Dosage: 300 MG, C3 (CYCLIC)
     Route: 042
     Dates: start: 20210528
  4. TRAZIMERA [Suspect]
     Active Substance: TRASTUZUMAB-QYYP
     Dosage: 300 MG, C4 (CYCLIC)
     Route: 042
     Dates: start: 20210618
  5. DOCETAXEL [Suspect]
     Active Substance: DOCETAXEL
     Indication: Invasive ductal breast carcinoma
     Dosage: 140 MG, CYCLIC
     Route: 042
     Dates: start: 20210415
  6. DOCETAXEL [Suspect]
     Active Substance: DOCETAXEL
     Dosage: 140 MG, CYCLIC
     Route: 042
     Dates: start: 20210507
  7. DOCETAXEL [Suspect]
     Active Substance: DOCETAXEL
     Dosage: 140 MG, CYCLIC
     Route: 042
     Dates: start: 20210528
  8. DOCETAXEL [Suspect]
     Active Substance: DOCETAXEL
     Dosage: 140 MG, CYCLIC
     Route: 042
     Dates: start: 20210618

REACTIONS (1)
  - Capillary leak syndrome [Unknown]

NARRATIVE: CASE EVENT DATE: 20210611
